FAERS Safety Report 6046601-9 (Version None)
Quarter: 2009Q1

REPORT INFORMATION
  Report Type: 
  Country: None (occurrence: None)
  Receive Date: 20090122
  Receipt Date: 20090115
  Transmission Date: 20090719
  Serious: Yes (Hospitalization)
  Sender: FDA-Public Use
  Company Number: PHBS2009TR00521

PATIENT
  Age: 51 Year
  Sex: Male

DRUGS (4)
  1. CYCLOSPORINE [Suspect]
     Indication: LIVER TRANSPLANT
  2. MYCOPHENOLATE MOFETIL [Suspect]
     Indication: LIVER TRANSPLANT
  3. PREDNISOLONE [Concomitant]
     Indication: LIVER TRANSPLANT
     Dosage: 5 MG
  4. PREDNISOLONE [Concomitant]
     Dosage: 0.5 MG/KG/DAY

REACTIONS (12)
  - BEHCET'S SYNDROME [None]
  - BIOPSY SITE UNSPECIFIED ABNORMAL [None]
  - DIARRHOEA [None]
  - HYPERPLASIA [None]
  - INFLAMMATION [None]
  - LIP ULCERATION [None]
  - MOUTH ULCERATION [None]
  - ODYNOPHAGIA [None]
  - PAIN [None]
  - PARENTERAL NUTRITION [None]
  - SCROTAL ULCER [None]
  - TONGUE ULCERATION [None]
